FAERS Safety Report 8802393 (Version 2)
Quarter: 2012Q4

REPORT INFORMATION
  Report Type: 
  Country: US (occurrence: US)
  Receive Date: 20120921
  Receipt Date: 20120926
  Transmission Date: 20130627
  Serious: No
  Sender: FDA-Public Use
  Company Number: US-009507513-1209USA004960

PATIENT
  Age: 32 Year
  Sex: Male

DRUGS (2)
  1. SAPHRIS [Suspect]
     Indication: BIPOLAR DISORDER
     Dosage: 10 mg hs, 15 mg am
     Route: 060
  2. SAPHRIS [Suspect]
     Indication: SCHIZOPHRENIA

REACTIONS (2)
  - Nausea [Unknown]
  - Overdose [Unknown]
